FAERS Safety Report 25480579 (Version 3)
Quarter: 2025Q3

REPORT INFORMATION
  Report Type: Spontaneous
  Country: US (occurrence: US)
  Receive Date: 20250625
  Receipt Date: 20250728
  Transmission Date: 20251021
  Serious: No
  Sender: PFIZER
  Company Number: US-PFIZER INC-202500127410

PATIENT
  Age: 14 Year
  Sex: Male
  Weight: 52.154 kg

DRUGS (2)
  1. GENOTROPIN [Suspect]
     Active Substance: SOMATROPIN
     Indication: Growth hormone deficiency
     Dosage: 2.0MG INJECTION NIGHTLY
  2. GENOTROPIN [Suspect]
     Active Substance: SOMATROPIN
     Dosage: 1.4MG DAILY INJECTION

REACTIONS (2)
  - Device issue [Unknown]
  - Drug dose omission by device [Unknown]
